FAERS Safety Report 7168202-1 (Version None)
Quarter: 2010Q4

REPORT INFORMATION
  Report Type: 
  Country: None (occurrence: None)
  Receive Date: 20101216
  Receipt Date: 20101214
  Transmission Date: 20110411
  Serious: No
  Sender: FDA-Public Use
  Company Number: US-PFIZER INC-2010171720

PATIENT
  Sex: Male

DRUGS (2)
  1. DETROL LA [Suspect]
     Dosage: 4 MG, UNK
     Route: 048
  2. LISINOPRIL [Suspect]
     Dosage: UNK

REACTIONS (1)
  - LIBIDO DECREASED [None]
